FAERS Safety Report 8634798 (Version 3)
Quarter: 2014Q1

REPORT INFORMATION
  Report Type: Spontaneous
  Country: JP (occurrence: None)
  Receive Date: 20120611
  Receipt Date: 20140218
  Transmission Date: 20141002
  Serious: Yes (Hospitalization, Other)
  Sender: FDA-Public Use
  Company Number: ADR-2010-9543

PATIENT
  Age: 57 Year
  Sex: Male

DRUGS (1)
  1. BACLOFEN [Suspect]
     Indication: MUSCLE SPASTICITY
     Dosage: MCG, DAILY, INTRATH
     Route: 037

REACTIONS (13)
  - Cerebral haemorrhage [None]
  - Femur fracture [None]
  - Altered state of consciousness [None]
  - Hypokalaemia [None]
  - Ataxia [None]
  - Sputum retention [None]
  - Constipation [None]
  - Acidosis [None]
  - Hypertensive emergency [None]
  - Pneumonia aspiration [None]
  - Hemiplegia [None]
  - Thalamus haemorrhage [None]
  - Glossoptosis [None]
